FAERS Safety Report 19610403 (Version 1)
Quarter: 2021Q3

REPORT INFORMATION
  Report Type: Report from Study
  Country: GB (occurrence: GB)
  Receive Date: 20210726
  Receipt Date: 20210726
  Transmission Date: 20211014
  Serious: Yes (Other)
  Sender: FDA-Public Use
  Company Number: GB-SAMSUNG BIOEPIS-SB-2020-35978

PATIENT
  Age: 40 Year
  Sex: Male

DRUGS (3)
  1. IMRALDI [Suspect]
     Active Substance: ADALIMUMAB
     Indication: CROHN^S DISEASE
     Dosage: WEEK ZERO
     Route: 058
     Dates: start: 20201110
  2. IMRALDI [Suspect]
     Active Substance: ADALIMUMAB
     Dosage: WEEK TWO
     Route: 058
  3. IMRALDI [Suspect]
     Active Substance: ADALIMUMAB
     Dosage: WEEK FOUR PLUS
     Route: 058

REACTIONS (14)
  - Mobility decreased [Unknown]
  - Loss of personal independence in daily activities [Unknown]
  - Anaemia [Unknown]
  - Fatigue [Unknown]
  - Somnolence [Unknown]
  - Feeding disorder [Unknown]
  - Abnormal faeces [Unknown]
  - Crohn^s disease [Unknown]
  - Increased appetite [Unknown]
  - Arthralgia [Unknown]
  - Weight decreased [Unknown]
  - Influenza like illness [Unknown]
  - Sleep disorder [Unknown]
  - Drug ineffective [Unknown]
